FAERS Safety Report 4625197-X (Version None)
Quarter: 2005Q2

REPORT INFORMATION
  Report Type: 
  Country: None (occurrence: None)
  Receive Date: 20050401
  Receipt Date: 20040916
  Transmission Date: 20051028
  Serious: Yes (Other)
  Sender: FDA-Public Use
  Company Number: US-ROCHE-380875

PATIENT
  Age: 55 Year
  Sex: Male
  Weight: 97.5 kg

DRUGS (6)
  1. PEGASYS [Suspect]
     Dosage: 1ST SHOT OF THE DRUG.
     Route: 058
     Dates: start: 20040729
  2. PEGASYS [Suspect]
     Dosage: 2ND SHOT OF THE DRUG.
     Route: 058
  3. PEGASYS [Suspect]
     Route: 058
     Dates: start: 20040915
  4. COPEGUS [Suspect]
     Route: 048
     Dates: start: 20040729, end: 20040911
  5. CELLCEPT [Concomitant]
     Indication: LIVER TRANSPLANT
     Route: 048
     Dates: start: 20040615
  6. PROGRAF [Concomitant]
     Indication: LIVER TRANSPLANT
     Route: 048
     Dates: start: 20040615

REACTIONS (16)
  - ABDOMINAL PAIN UPPER [None]
  - BACK PAIN [None]
  - CONSTIPATION [None]
  - DYSPNOEA [None]
  - FATIGUE [None]
  - GINGIVAL PAIN [None]
  - GINGIVAL SWELLING [None]
  - GINGIVITIS [None]
  - HAEMOCHROMATOSIS [None]
  - HAEMOGLOBIN DECREASED [None]
  - MYALGIA [None]
  - PRURITUS [None]
  - RED BLOOD CELL COUNT DECREASED [None]
  - TEETH BRITTLE [None]
  - TOOTH LOSS [None]
  - WHITE BLOOD CELL COUNT DECREASED [None]
